FAERS Safety Report 16762839 (Version 2)
Quarter: 2019Q3

REPORT INFORMATION
  Report Type: Spontaneous
  Country: CN (occurrence: CN)
  Receive Date: 20190901
  Receipt Date: 20190905
  Transmission Date: 20191005
  Serious: Yes (Other)
  Sender: FDA-Public Use
  Company Number: CN-009507513-1908CHN011369

PATIENT
  Age: 73 Year
  Sex: Male
  Weight: 77 kg

DRUGS (4)
  1. SODIUM CHLORIDE. [Suspect]
     Active Substance: SODIUM CHLORIDE
     Dosage: 50 MILLILITER, QD
     Route: 041
     Dates: start: 20190726, end: 20190726
  2. INLYTA [Suspect]
     Active Substance: AXITINIB
     Indication: RENAL CANCER
     Dosage: 5 MILLIGRAM, BID
     Route: 048
     Dates: start: 20190726
  3. KEYTRUDA [Suspect]
     Active Substance: PEMBROLIZUMAB
     Indication: RENAL CANCER
     Dosage: 200 MILLIGRAM, QD
     Route: 041
     Dates: start: 20190726, end: 20190726
  4. TELMISARTAN. [Concomitant]
     Active Substance: TELMISARTAN
     Indication: BLOOD PRESSURE ABNORMAL
     Dosage: 80 MILLIGRAM, QD
     Route: 048
     Dates: start: 20190726, end: 20190826

REACTIONS (2)
  - Hypertension [Recovering/Resolving]
  - Product use issue [Unknown]

NARRATIVE: CASE EVENT DATE: 20190726
